FAERS Safety Report 24383934 (Version 1)
Quarter: 2024Q3

REPORT INFORMATION
  Report Type: Spontaneous
  Country: US (occurrence: None)
  Receive Date: 20240930
  Receipt Date: 20240930
  Transmission Date: 20241017
  Serious: Yes (Hospitalization)
  Sender: Public
  Company Number: None

PATIENT
  Age: 69 Year
  Sex: Male

DRUGS (1)
  1. NUPLAZID [Suspect]
     Active Substance: PIMAVANSERIN TARTRATE
     Indication: Parkinson^s disease psychosis
     Dosage: 34 MG DAILY ORAL
     Route: 048
     Dates: start: 20240612, end: 20240814

REACTIONS (4)
  - Tachycardia [None]
  - Fatigue [None]
  - Asthenia [None]
  - Muscle atrophy [None]

NARRATIVE: CASE EVENT DATE: 20240814
